FAERS Safety Report 22121704 (Version 1)
Quarter: 2023Q1

REPORT INFORMATION
  Report Type: Spontaneous
  Country: GR (occurrence: GR)
  Receive Date: 20230321
  Receipt Date: 20230321
  Transmission Date: 20230417
  Serious: Yes (Other)
  Sender: FDA-Public Use
  Company Number: GR-FreseniusKabi-FK202303594

PATIENT
  Age: 45 Year
  Sex: Male

DRUGS (2)
  1. ROPIVACAINE [Suspect]
     Active Substance: ROPIVACAINE
     Indication: Cataract operation
     Route: 047
  2. LIDOCAINE [Concomitant]
     Active Substance: LIDOCAINE
     Indication: Cataract operation
     Route: 047

REACTIONS (1)
  - Macular ischaemia [Unknown]
